FAERS Safety Report 7466903-9 (Version None)
Quarter: 2011Q2

REPORT INFORMATION
  Report Type: 
  Country: None (occurrence: None)
  Receive Date: 20110509
  Receipt Date: 20110403
  Transmission Date: 20111010
  Serious: Yes (Other)
  Sender: FDA-Public Use
  Company Number: US-BAYER-2010-004367

PATIENT
  Sex: Female
  Weight: 73.469 kg

DRUGS (2)
  1. YAZ [Suspect]
     Indication: ACNE
     Dosage: UNK
     Route: 048
     Dates: start: 20090401, end: 20090701
  2. YASMIN [Suspect]
     Indication: ACNE
     Dosage: UNK
     Route: 048
     Dates: start: 20090401, end: 20090701

REACTIONS (5)
  - PAIN [None]
  - CARDIOVASCULAR DISORDER [None]
  - ARRHYTHMIA [None]
  - INJURY [None]
  - HEADACHE [None]
